FAERS Safety Report 14770147 (Version 5)
Quarter: 2019Q4

REPORT INFORMATION
  Report Type: Spontaneous
  Country: US (occurrence: US)
  Receive Date: 20180417
  Receipt Date: 20191226
  Transmission Date: 20200122
  Serious: Yes (Hospitalization, Other)
  Sender: FDA-Public Use
  Company Number: US-PFIZER INC-2018150764

PATIENT
  Age: 81 Year
  Sex: Female
  Weight: 60 kg

DRUGS (3)
  1. AMLODIPINE [Concomitant]
     Active Substance: AMLODIPINE BESYLATE
     Indication: HYPERTENSION
     Dosage: 1 DF, 1X/DAY
     Route: 048
  2. IBRANCE [Suspect]
     Active Substance: PALBOCICLIB
     Dosage: 125 MG, CYCLIC [21 DAYS THEN OFF 7 DAYS]
     Route: 048
     Dates: start: 20180411
  3. IBRANCE [Suspect]
     Active Substance: PALBOCICLIB
     Indication: BREAST CANCER METASTATIC
     Dosage: 125 MG CYCLIC (ONCE A DAY FOR 3 WEEKS THEN OFF FOR ONE WEEK)
     Route: 048
     Dates: start: 20180313, end: 2018

REACTIONS (7)
  - Cerebral haemorrhage [Recovered/Resolved with Sequelae]
  - Alopecia [Unknown]
  - Memory impairment [Recovering/Resolving]
  - Weight decreased [Recovered/Resolved]
  - Pneumonia [Recovered/Resolved]
  - Nervous system disorder [Unknown]
  - Malaise [Unknown]

NARRATIVE: CASE EVENT DATE: 201804
